FAERS Safety Report 5574939-8 (Version None)
Quarter: 2007Q4

REPORT INFORMATION
  Report Type: 
  Country: None (occurrence: None)
  Receive Date: 20071227
  Receipt Date: 20071221
  Transmission Date: 20080405
  Serious: Yes (Hospitalization)
  Sender: FDA-Public Use
  Company Number: A0700309A

PATIENT
  Sex: Female

DRUGS (15)
  1. AVANDIA [Suspect]
     Dosage: 8MG PER DAY
     Route: 048
     Dates: start: 20020913, end: 20070115
  2. METFORMIN HCL [Concomitant]
  3. LANTUS [Concomitant]
  4. SYNTHROID [Concomitant]
  5. VYTORIN [Concomitant]
  6. LOPRESSOR [Concomitant]
  7. LIPID [Concomitant]
  8. IMDUR [Concomitant]
  9. ATIVAN [Concomitant]
  10. DIAVAN [Concomitant]
  11. RELAFEN [Concomitant]
  12. ASPIRIN [Concomitant]
  13. MULTI-VITAMIN [Concomitant]
  14. IRON [Concomitant]
  15. CALCIUM + D [Concomitant]

REACTIONS (7)
  - ARTERIAL THERAPEUTIC PROCEDURE [None]
  - CEREBROVASCULAR ACCIDENT [None]
  - CORONARY ARTERY BYPASS [None]
  - DYSPNOEA [None]
  - FLUID RETENTION [None]
  - MYOCARDIAL INFARCTION [None]
  - WEIGHT INCREASED [None]
